FAERS Safety Report 7503575-9 (Version None)
Quarter: 2011Q2

REPORT INFORMATION
  Report Type: 
  Country: None (occurrence: None)
  Receive Date: 20110525
  Receipt Date: 20110523
  Transmission Date: 20111010
  Serious: Yes (Other)
  Sender: FDA-Public Use
  Company Number: US-PFIZER INC-2011111083

PATIENT
  Sex: Female
  Weight: 73 kg

DRUGS (4)
  1. EFFEXOR [Concomitant]
     Dosage: UNK
  2. LYRICA [Suspect]
     Indication: FIBROMYALGIA
     Dosage: 75 MG, 2X/DAY
     Route: 048
     Dates: start: 20110401
  3. PROPRANOLOL [Concomitant]
     Dosage: UNK
  4. THYROID TAB [Concomitant]
     Dosage: UNK

REACTIONS (4)
  - LIP SWELLING [None]
  - OEDEMA PERIPHERAL [None]
  - PHARYNGEAL OEDEMA [None]
  - TONGUE OEDEMA [None]
